FAERS Safety Report 9382759 (Version 1)
Quarter: 2013Q3

REPORT INFORMATION
  Report Type: Spontaneous
  Country: US (occurrence: US)
  Receive Date: 20130703
  Receipt Date: 20130703
  Transmission Date: 20140515
  Serious: Yes (Other)
  Sender: FDA-Public Use
  Company Number: US-TEVA-416559USA

PATIENT
  Age: 52 Year
  Sex: Female

DRUGS (7)
  1. NORTRIPTYLINE [Suspect]
     Indication: NEUROPATHY PERIPHERAL
     Dosage: 150 MILLIGRAM DAILY;
  2. LYRICA [Suspect]
     Dosage: 450 MILLIGRAM DAILY;
     Dates: start: 201201, end: 201302
  3. BENADRYL [Concomitant]
     Dosage: 75 MILLIGRAM DAILY;
  4. POTASSIUM [Concomitant]
  5. EFFEXOR-XR [Concomitant]
     Indication: BIPOLAR I DISORDER
     Dosage: 150 MILLIGRAM DAILY;
  6. BACLOFEN [Concomitant]
     Indication: MUSCLE RELAXANT THERAPY
     Dosage: 30 MILLIGRAM DAILY;
  7. ROPINIROLE [Concomitant]
     Indication: RESTLESS LEGS SYNDROME

REACTIONS (5)
  - Blindness [Recovered/Resolved]
  - Dizziness [Unknown]
  - Balance disorder [Recovered/Resolved]
  - Amnesia [Recovered/Resolved]
  - Off label use [Unknown]
